FAERS Safety Report 23947779 (Version 1)
Quarter: 2024Q2

REPORT INFORMATION
  Report Type: Spontaneous
  Country: US (occurrence: US)
  Receive Date: 20240606
  Receipt Date: 20240606
  Transmission Date: 20240715
  Serious: Yes (Other)
  Sender: FDA-Public Use
  Company Number: US-BIOGEN-2019BI00793222

PATIENT
  Sex: Female

DRUGS (2)
  1. TYSABRI [Suspect]
     Active Substance: NATALIZUMAB
     Indication: Multiple sclerosis
     Route: 050
     Dates: start: 20100429, end: 20190625
  2. TYSABRI [Suspect]
     Active Substance: NATALIZUMAB
     Route: 050
     Dates: start: 20191010

REACTIONS (10)
  - Lumbar spinal stenosis [Not Recovered/Not Resolved]
  - Intervertebral disc protrusion [Unknown]
  - Spinal compression fracture [Recovered/Resolved]
  - Malaise [Not Recovered/Not Resolved]
  - Osteoporosis [Unknown]
  - Fall [Recovered/Resolved]
  - Motor dysfunction [Unknown]
  - Gait disturbance [Unknown]
  - Balance disorder [Unknown]
  - Multiple sclerosis relapse [Not Recovered/Not Resolved]

NARRATIVE: CASE EVENT DATE: 20170101
